FAERS Safety Report 16001570 (Version 8)
Quarter: 2023Q1

REPORT INFORMATION
  Report Type: Spontaneous
  Country: US (occurrence: None)
  Receive Date: 20190225
  Receipt Date: 20230127
  Transmission Date: 20230417
  Serious: Yes (Death, Hospitalization, Other)
  Sender: FDA-Public Use
  Company Number: 2018SF64993

PATIENT
  Age: 79 Year
  Sex: Female
  Weight: 68.9 kg

DRUGS (65)
  1. NEXIUM 24HR [Suspect]
     Active Substance: ESOMEPRAZOLE MAGNESIUM
     Indication: Gastrooesophageal reflux disease
     Route: 048
     Dates: start: 2016, end: 2017
  2. NEXIUM 24HR [Suspect]
     Active Substance: ESOMEPRAZOLE MAGNESIUM
     Indication: Gastrooesophageal reflux disease
     Route: 048
     Dates: start: 20060101, end: 20171231
  3. NEXIUM 24HR [Suspect]
     Active Substance: ESOMEPRAZOLE MAGNESIUM
     Indication: Gastrooesophageal reflux disease
     Route: 048
  4. NEXIUM 24HR [Suspect]
     Active Substance: ESOMEPRAZOLE MAGNESIUM
     Indication: Gastrooesophageal reflux disease
     Route: 048
     Dates: start: 20130304, end: 20161205
  5. NEXIUM 24HR [Suspect]
     Active Substance: ESOMEPRAZOLE MAGNESIUM
     Indication: Gastrooesophageal reflux disease
     Dosage: GENERIC
     Route: 065
     Dates: start: 20170830, end: 20180303
  6. NEXIUM [Suspect]
     Active Substance: ESOMEPRAZOLE MAGNESIUM
     Indication: Gastrooesophageal reflux disease
     Route: 048
     Dates: start: 2012, end: 20161205
  7. NEXIUM [Suspect]
     Active Substance: ESOMEPRAZOLE MAGNESIUM
     Indication: Gastrooesophageal reflux disease
     Route: 048
     Dates: start: 20130306, end: 20161205
  8. NEXIUM [Suspect]
     Active Substance: ESOMEPRAZOLE MAGNESIUM
     Indication: Gastrooesophageal reflux disease
     Dosage: GENERIC, 40 MG DAILY
     Route: 065
     Dates: start: 20130830, end: 20161205
  9. NEXIUM [Suspect]
     Active Substance: ESOMEPRAZOLE MAGNESIUM
     Indication: Gastrooesophageal reflux disease
     Route: 048
     Dates: start: 20140728
  10. NEXIUM [Suspect]
     Active Substance: ESOMEPRAZOLE MAGNESIUM
     Indication: Gastrooesophageal reflux disease
     Route: 048
     Dates: start: 20140502
  11. NEXIUM [Suspect]
     Active Substance: ESOMEPRAZOLE MAGNESIUM
     Indication: Gastrooesophageal reflux disease
     Dosage: GENERIC, 40 MG DAILY
     Route: 065
     Dates: start: 2017, end: 2018
  12. PRILOSEC [Suspect]
     Active Substance: OMEPRAZOLE MAGNESIUM
     Route: 048
     Dates: start: 2015
  13. PRILOSEC [Suspect]
     Active Substance: OMEPRAZOLE MAGNESIUM
     Dosage: GENERIC
     Route: 065
     Dates: start: 20120525, end: 20150624
  14. PRILOSEC OTC [Suspect]
     Active Substance: OMEPRAZOLE MAGNESIUM
     Route: 048
  15. PREVACID [Suspect]
     Active Substance: LANSOPRAZOLE
     Route: 065
  16. PREVACID 24 HR [Suspect]
     Active Substance: LANSOPRAZOLE
     Route: 065
  17. AMLODIPINE [Concomitant]
     Active Substance: AMLODIPINE BESYLATE
     Indication: Hypertension
     Dates: start: 20130807, end: 20181126
  18. ATORVASTATIN [Concomitant]
     Active Substance: ATORVASTATIN
     Indication: Blood cholesterol increased
     Dates: start: 20130130, end: 20181126
  19. LISINOPRIL [Concomitant]
     Active Substance: LISINOPRIL
     Indication: Hypertension
     Dates: start: 20121207, end: 20181126
  20. NAPROXEN [Concomitant]
     Active Substance: NAPROXEN
     Indication: Pain
     Dates: start: 20121012, end: 20140614
  21. NAPROXEN [Concomitant]
     Active Substance: NAPROXEN
     Indication: Pyrexia
     Dates: start: 20121012, end: 20140614
  22. LANTUS [Concomitant]
     Active Substance: INSULIN GLARGINE
     Indication: Diabetes mellitus
  23. TRAMADOL [Concomitant]
     Active Substance: TRAMADOL
     Indication: Pain
     Dates: start: 20150921, end: 20181230
  24. AMLODIPINE BESYLATE [Concomitant]
     Active Substance: AMLODIPINE BESYLATE
  25. GLIPIZIDE [Concomitant]
     Active Substance: GLIPIZIDE
  26. ALENDRONATE SODIUM [Concomitant]
     Active Substance: ALENDRONATE SODIUM
  27. TRAZODONE [Concomitant]
     Active Substance: TRAZODONE HYDROCHLORIDE
  28. METOPROLOL TARTRATE [Concomitant]
     Active Substance: METOPROLOL TARTRATE
  29. GABAPENTIN [Concomitant]
     Active Substance: GABAPENTIN
  30. ALENDRONATE [Concomitant]
     Active Substance: ALENDRONATE SODIUM
  31. DELZICOL [Concomitant]
     Active Substance: MESALAMINE
  32. FERROUS SULFATE [Concomitant]
     Active Substance: FERROUS SULFATE
  33. SODIUM BICARBONATE [Concomitant]
     Active Substance: SODIUM BICARBONATE
  34. BISACODYL [Concomitant]
     Active Substance: BISACODYL
  35. ASPIRIN [Concomitant]
     Active Substance: ASPIRIN
  36. INSULIN NOS [Concomitant]
     Active Substance: INSULIN NOS
  37. CALCIUM [Concomitant]
     Active Substance: CALCIUM
  38. HYDRALAZINE [Concomitant]
     Active Substance: HYDRALAZINE HYDROCHLORIDE
  39. LASIX [Concomitant]
     Active Substance: FUROSEMIDE
  40. LORATADINE [Concomitant]
     Active Substance: LORATADINE
  41. VITAMINS [Concomitant]
     Active Substance: VITAMINS
  42. PROBIOTICS NOS [Concomitant]
     Active Substance: PROBIOTICS NOS
  43. MESALAMINE [Concomitant]
     Active Substance: MESALAMINE
  44. INSULIN LISPRO [Concomitant]
     Active Substance: INSULIN LISPRO
  45. INSULIN GLARGINE [Concomitant]
     Active Substance: INSULIN GLARGINE
  46. NITROGLYCERIN [Concomitant]
     Active Substance: NITROGLYCERIN
  47. TAMIFLU [Concomitant]
     Active Substance: OSELTAMIVIR PHOSPHATE
  48. ACETAMINOPHEN\HYDROCODONE BITARTRATE [Concomitant]
     Active Substance: ACETAMINOPHEN\HYDROCODONE BITARTRATE
  49. GLYBURIDE\METFORMIN [Concomitant]
     Active Substance: GLYBURIDE\METFORMIN
  50. ASACOL [Concomitant]
     Active Substance: MESALAMINE
  51. CIPROFLOXACIN HYDROCHLORIDE [Concomitant]
     Active Substance: CIPROFLOXACIN HYDROCHLORIDE
  52. METRONIDAZOLE [Concomitant]
     Active Substance: METRONIDAZOLE
  53. KETOCONAZOLE [Concomitant]
     Active Substance: KETOCONAZOLE
  54. BENZONATATE [Concomitant]
     Active Substance: BENZONATATE
  55. OYSCO [Concomitant]
  56. CEPHALEXIN [Concomitant]
     Active Substance: CEPHALEXIN
  57. AMOXICILLIN\CLAVULANATE POTASSIUM [Concomitant]
     Active Substance: AMOXICILLIN\CLAVULANATE POTASSIUM
  58. GAVILYTE G [Concomitant]
     Active Substance: POLYETHYLENE GLYCOL 3350\POTASSIUM CHLORIDE\SODIUM BICARBONATE\SODIUM CHLORIDE\SODIUM SULFATE
  59. AZITHROMYCIN [Concomitant]
     Active Substance: AZITHROMYCIN
  60. IOPHEN-C [Concomitant]
  61. CAPSAICIN [Concomitant]
     Active Substance: CAPSAICIN
  62. HYDROXYZINE [Concomitant]
     Active Substance: HYDROXYZINE HYDROCHLORIDE
  63. CETIRIZINE [Concomitant]
     Active Substance: CETIRIZINE HYDROCHLORIDE
  64. HYDROCORTISONE [Concomitant]
     Active Substance: HYDROCORTISONE
  65. NYSTATIN [Concomitant]
     Active Substance: NYSTATIN

REACTIONS (8)
  - Chronic left ventricular failure [Fatal]
  - Chronic kidney disease [Not Recovered/Not Resolved]
  - End stage renal disease [Not Recovered/Not Resolved]
  - Renal injury [Unknown]
  - Acute kidney injury [Unknown]
  - Chronic kidney disease-mineral and bone disorder [Unknown]
  - Renal failure [Unknown]
  - Nephrogenic anaemia [Unknown]

NARRATIVE: CASE EVENT DATE: 20130101
